FAERS Safety Report 13468714 (Version 2)
Quarter: 2018Q1

REPORT INFORMATION
  Report Type: Spontaneous
  Country: US (occurrence: US)
  Receive Date: 20170421
  Receipt Date: 20180323
  Transmission Date: 20180508
  Serious: Yes (Death, Life-Threatening, Hospitalization, Other)
  Sender: FDA-Public Use
  Company Number: US-PFIZER INC-2017174546

PATIENT
  Age: 26 Year
  Sex: Female

DRUGS (2)
  1. ADVIL [Suspect]
     Active Substance: IBUPROFEN
     Indication: PYREXIA
     Dosage: UNK FOR 3 TO 4 DAYS
     Route: 048
     Dates: start: 201502, end: 201502
  2. ADVIL [Suspect]
     Active Substance: IBUPROFEN
     Dosage: UNK
     Route: 048
     Dates: start: 20150207

REACTIONS (31)
  - Respiratory failure [Unknown]
  - Multiple organ dysfunction syndrome [Unknown]
  - Hypothermia [Unknown]
  - Acute kidney injury [Unknown]
  - Respiratory acidosis [Unknown]
  - Fluid overload [Unknown]
  - Infection [Unknown]
  - Lagophthalmos [Unknown]
  - Stevens-Johnson syndrome [Fatal]
  - Septic shock [Unknown]
  - Pancytopenia [Unknown]
  - Pneumonia [Unknown]
  - Pleural effusion [Unknown]
  - Toxic epidermal necrolysis [Fatal]
  - Acidosis [Unknown]
  - Ascites [Unknown]
  - Disseminated intravascular coagulation [Unknown]
  - Cardiac arrest [Unknown]
  - Anaemia [Unknown]
  - Bradycardia [Unknown]
  - Conduction disorder [Unknown]
  - Metabolic acidosis [Unknown]
  - Transaminases increased [Unknown]
  - Eyelid disorder [Unknown]
  - Hepatotoxicity [Unknown]
  - Hypotension [Unknown]
  - Oxygen saturation decreased [Unknown]
  - Liver function test increased [Unknown]
  - Hepatitis [Unknown]
  - Hypernatraemia [Unknown]
  - Blood bilirubin abnormal [Unknown]

NARRATIVE: CASE EVENT DATE: 2015
